FAERS Safety Report 16109206 (Version 1)
Quarter: 2019Q1

REPORT INFORMATION
  Report Type: Spontaneous
  Country: US (occurrence: US)
  Receive Date: 20190323
  Receipt Date: 20190323
  Transmission Date: 20190418
  Serious: Yes (Death, Hospitalization, Other)
  Sender: FDA-Public Use
  Company Number: PHHY2019US061094

PATIENT
  Sex: Male

DRUGS (1)
  1. KYMRIAH [Suspect]
     Active Substance: TISAGENLECLEUCEL
     Indication: ACUTE LYMPHOCYTIC LEUKAEMIA REFRACTORY
     Route: 065

REACTIONS (9)
  - Pancytopenia [Unknown]
  - Malnutrition [Unknown]
  - Febrile neutropenia [Unknown]
  - Mucormycosis [Unknown]
  - Palatal swelling [Unknown]
  - Acute myeloid leukaemia [Unknown]
  - Second primary malignancy [Unknown]
  - Death [Fatal]
  - Pyrexia [Unknown]
